FAERS Safety Report 7361312-5 (Version None)
Quarter: 2011Q1

REPORT INFORMATION
  Report Type: 
  Country: None (occurrence: None)
  Receive Date: 20110318
  Receipt Date: 20110316
  Transmission Date: 20110831
  Serious: Yes (Death)
  Sender: FDA-Public Use
  Company Number: A0918697A

PATIENT
  Age: 34 Year
  Sex: Male

DRUGS (11)
  1. CEFEPIME [Concomitant]
     Dates: start: 20110302, end: 20110307
  2. HEPARIN SODIUM [Concomitant]
     Dates: start: 20110227, end: 20110310
  3. AZITHROMYCIN [Concomitant]
     Route: 042
     Dates: start: 20110226, end: 20110228
  4. IMIPENEM AND CILASTATIN SODIUM [Concomitant]
  5. TAMIFLU [Concomitant]
     Dosage: 150MG TWICE PER DAY
     Dates: start: 20110226, end: 20110308
  6. CEFTRIAXONE [Concomitant]
     Dates: start: 20110224, end: 20110226
  7. AZETREONAM [Concomitant]
     Dates: start: 20110308, end: 20110310
  8. VANCOMYCIN HCL [Concomitant]
     Dates: start: 20110226, end: 20110308
  9. FUROSEMIDE [Concomitant]
     Dates: start: 20110227, end: 20110310
  10. ZANAMIVIR [Suspect]
     Indication: H1N1 INFLUENZA
     Route: 042
     Dates: start: 20110303
  11. MOXIFLOXACIN [Concomitant]
     Dates: start: 20110301, end: 20110304

REACTIONS (1)
  - DEATH [None]
